FAERS Safety Report 6043196-0 (Version None)
Quarter: 2009Q1

REPORT INFORMATION
  Report Type: 
  Country: None (occurrence: None)
  Receive Date: 20090119
  Receipt Date: 20090107
  Transmission Date: 20090719
  Serious: Yes (Other)
  Sender: FDA-Public Use
  Company Number: BE-ELI_LILLY_AND_COMPANY-BE200810000597

PATIENT
  Sex: Male
  Weight: 69.7 kg

DRUGS (2)
  1. BYETTA [Suspect]
     Indication: DIABETES MELLITUS
     Dosage: UNK, 2/D
     Route: 065
     Dates: start: 20080801
  2. BYETTA [Suspect]
     Dosage: UNK, 2/D
     Route: 065

REACTIONS (3)
  - BLOOD TRIGLYCERIDES INCREASED [None]
  - HYPOTHYROIDISM [None]
  - PANCREATITIS [None]
